FAERS Safety Report 7942620-3 (Version None)
Quarter: 2011Q4

REPORT INFORMATION
  Report Type: 
  Country: None (occurrence: None)
  Receive Date: 20111128
  Receipt Date: 20111111
  Transmission Date: 20120403
  Serious: Yes (Hospitalization)
  Sender: FDA-Public Use
  Company Number: AU-EISAI INC-E3810-05089-SPO-AU

PATIENT
  Sex: Male
  Weight: 68 kg

DRUGS (4)
  1. AUGMENTIN DUO FORTE [Concomitant]
     Indication: ABDOMINAL PAIN
  2. FLAGYL [Concomitant]
     Indication: DIVERTICULITIS
  3. SAW PALMETTO [Concomitant]
  4. RABEPRAZOLE SODIUM [Suspect]
     Route: 048
     Dates: start: 20090525, end: 20090824

REACTIONS (1)
  - RENAL IMPAIRMENT [None]
